FAERS Safety Report 9165332 (Version 1)
Quarter: 2013Q1

REPORT INFORMATION
  Report Type: Report from Study
  Country: US (occurrence: US)
  Receive Date: 20130315
  Receipt Date: 20130315
  Transmission Date: 20140127
  Serious: Yes (Hospitalization)
  Sender: FDA-Public Use
  Company Number: US-BRISTOL-MYERS SQUIBB COMPANY-17453580

PATIENT
  Age: 69 Year
  Sex: Female

DRUGS (43)
  1. APIXABAN [Suspect]
     Indication: THROMBOSIS PROPHYLAXIS
     Dosage: INTERRUPTED ON 08JAN13?NO OF COURSES-2
     Route: 048
     Dates: start: 20100810
  2. DILTIAZEM HCL [Concomitant]
  3. SIMCOR [Concomitant]
     Dosage: 1DF=500/20?AT BEDTIME
  4. NPH INSULIN [Concomitant]
     Dosage: 40 UNITS AT BEDTIME,35 UNITS IN MRNG
  5. SYNTHROID [Concomitant]
  6. LOTENSIN [Concomitant]
  7. HYDROCHLOROTHIAZIDE [Concomitant]
  8. FLUOXETINE [Concomitant]
  9. BUDESONIDE INHALER [Concomitant]
  10. MULTIVITAMIN [Concomitant]
  11. FISH OIL [Concomitant]
  12. POTASSIUM GLUCONATE [Concomitant]
  13. GARLIC [Concomitant]
     Dosage: TAB
  14. GLUCOSAMINE [Concomitant]
  15. GINKGO [Concomitant]
     Route: 048
  16. CHEMOTHERAPY [Concomitant]
     Indication: PANCREATIC CARCINOMA
  17. LASIX [Concomitant]
  18. XOPENEX [Concomitant]
     Dosage: 1DF=2 PUFF?Q4H
  19. CARDIZEM [Concomitant]
  20. JANUMET [Concomitant]
     Dosage: FORMULATION-JANUMET 50/500
  21. BENAZEPRIL HCL [Concomitant]
  22. DIGOXIN [Concomitant]
  23. FUROSEMIDE [Concomitant]
  24. TYLENOL [Concomitant]
  25. COMBIVENT [Concomitant]
  26. DULCOLAX [Concomitant]
  27. SYMBICORT [Concomitant]
  28. BUSPAR [Concomitant]
  29. CATAPRES [Concomitant]
  30. BENADRYL [Concomitant]
  31. MUCINEX [Concomitant]
  32. IMDUR [Concomitant]
  33. LEVAQUIN [Concomitant]
  34. LOPRESSOR [Concomitant]
  35. NIACIN [Concomitant]
  36. PROTONIX [Concomitant]
  37. HYDROCODONE [Concomitant]
  38. POTASSIUM CHLORIDE [Concomitant]
  39. MAALOX [Concomitant]
  40. IRON SULFATE [Concomitant]
  41. NOVOLOG [Concomitant]
  42. FORMOTEROL [Concomitant]
  43. PROZAC [Concomitant]

REACTIONS (3)
  - Asthenia [Recovered/Resolved]
  - Cardiac failure congestive [Recovered/Resolved]
  - Dyspnoea [Recovered/Resolved]
